FAERS Safety Report 9272737 (Version 1)
Quarter: 2013Q2

REPORT INFORMATION
  Report Type: Spontaneous
  Country: US (occurrence: US)
  Receive Date: 20130506
  Receipt Date: 20130506
  Transmission Date: 20140414
  Serious: No
  Sender: FDA-Public Use
  Company Number: US-ASTRAZENECA-2012SE61199

PATIENT
  Sex: Male

DRUGS (4)
  1. PRILOSEC OTC [Suspect]
     Indication: DYSPEPSIA
     Route: 048
     Dates: start: 20120726, end: 20120727
  2. CARDIOVASCULAR SYSTEM DRUGS [Concomitant]
     Dosage: UNKNOWN
  3. ALLERGY MEDICATION [Concomitant]
     Dosage: UNKNOWN
  4. ARTHRITIS MEDICAITON [Concomitant]
     Indication: ARTHRITIS
     Dosage: UNKNOWN

REACTIONS (1)
  - Pollakiuria [Unknown]
